FAERS Safety Report 8033539-0 (Version None)
Quarter: 2011Q4

REPORT INFORMATION
  Report Type: 
  Country: None (occurrence: None)
  Receive Date: 20111202
  Receipt Date: 20101115
  Transmission Date: 20120403
  Serious: Yes (Other)
  Sender: FDA-Public Use
  Company Number: WAES 0802USA00869

PATIENT
  Age: 62 Year
  Sex: Female
  Weight: 83.9154 kg

DRUGS (7)
  1. FOSAMAX [Suspect]
     Indication: OSTEOPOROSIS
     Dosage: 70 MG/WKY/PO
     Route: 048
     Dates: start: 20031205
  2. CYMBALTA [Concomitant]
  3. VALIUM [Concomitant]
  4. ASPIRIN [Concomitant]
  5. AVALIDE [Concomitant]
  6. FOSAMAX PLUS D [Suspect]
     Indication: OSTEOPOROSIS
     Dosage: UNK/UNK/UNK
  7. FORTEO [Concomitant]

REACTIONS (27)
  - DEPRESSION [None]
  - GINGIVAL DISORDER [None]
  - ANXIETY [None]
  - LOOSE TOOTH [None]
  - BONE DENSITY DECREASED [None]
  - LIPOMA [None]
  - ORAL DISORDER [None]
  - PAIN IN JAW [None]
  - TOOTH INFECTION [None]
  - DISTURBANCE IN ATTENTION [None]
  - ORAL INFECTION [None]
  - TOOTH FRACTURE [None]
  - DRUG HYPERSENSITIVITY [None]
  - FATIGUE [None]
  - RECTAL HAEMORRHAGE [None]
  - TOOTH ABSCESS [None]
  - OSTEONECROSIS OF JAW [None]
  - ORAL PAIN [None]
  - PERIODONTAL DISEASE [None]
  - TOOTH LOSS [None]
  - DENTAL CARIES [None]
  - TOOTH DISORDER [None]
  - TOOTH EROSION [None]
  - ANKLE FRACTURE [None]
  - IMPAIRED HEALING [None]
  - DIABETES MELLITUS INADEQUATE CONTROL [None]
  - COMPLEX REGIONAL PAIN SYNDROME [None]
